FAERS Safety Report 7771740-1 (Version None)
Quarter: 2011Q3

REPORT INFORMATION
  Report Type: 
  Country: None (occurrence: None)
  Receive Date: 20110922
  Receipt Date: 20110921
  Transmission Date: 20111222
  Serious: Yes (Other)
  Sender: FDA-Public Use
  Company Number: JP-PFIZER INC-2011213391

PATIENT
  Sex: Female
  Weight: 48 kg

DRUGS (3)
  1. ALINAMIN F [Concomitant]
     Indication: PAIN
     Dosage: 12.5 MG, 2X/DAY
     Route: 048
  2. PREGABALIN [Suspect]
     Indication: RADICULOPATHY
     Dosage: 25 MG, 3X/DAY
     Route: 048
     Dates: start: 20110527, end: 20110819
  3. EVISTA [Concomitant]
     Indication: PAIN
     Dosage: 30 MG, 2X/DAY
     Route: 048

REACTIONS (1)
  - CEREBRAL INFARCTION [None]
